FAERS Safety Report 18022102 (Version 2)
Quarter: 2020Q3

REPORT INFORMATION
  Report Type: Spontaneous
  Country: DE (occurrence: DE)
  Receive Date: 20200715
  Receipt Date: 20200729
  Transmission Date: 20201103
  Serious: Yes (Other)
  Sender: FDA-Public Use
  Company Number: DE-AUROBINDO-AUR-APL-2020-024899

PATIENT
  Sex: Female

DRUGS (3)
  1. LETROZOLE. [Suspect]
     Active Substance: LETROZOLE
     Indication: PRODUCT USED FOR UNKNOWN INDICATION
     Dosage: UNK
     Route: 065
  2. KISQALI [Suspect]
     Active Substance: RIBOCICLIB
     Dosage: 200 MILLIGRAM, 3 TIMES A DAY (600 MILLIGRAM, DAILY)
     Route: 065
     Dates: start: 201901
  3. KISQALI [Suspect]
     Active Substance: RIBOCICLIB
     Indication: PRODUCT USED FOR UNKNOWN INDICATION
     Dosage: 200 MILLIGRAM, TWO TIMES A DAY (400 MILLIGRAM, DAILY)
     Route: 065

REACTIONS (11)
  - Thrombosis [Unknown]
  - Inappropriate schedule of product administration [Unknown]
  - Lymphangioma [Not Recovered/Not Resolved]
  - Concomitant disease aggravated [Not Recovered/Not Resolved]
  - Hepatic enzyme increased [Recovered/Resolved]
  - Nasopharyngitis [Unknown]
  - Thyroxine increased [Unknown]
  - Metabolic disorder [Unknown]
  - Epistaxis [Recovered/Resolved]
  - Lymphocytosis [Unknown]
  - Cardiac disorder [Unknown]

NARRATIVE: CASE EVENT DATE: 201909
